FAERS Safety Report 17046808 (Version 1)
Quarter: 2019Q4

REPORT INFORMATION
  Report Type: Spontaneous
  Country: US (occurrence: US)
  Receive Date: 20191119
  Receipt Date: 20191119
  Transmission Date: 20200122
  Serious: Yes (Other)
  Sender: FDA-Public Use
  Company Number: US-SA-2019SA319298

PATIENT
  Age: 77 Year
  Sex: Male
  Weight: 73.9 kg

DRUGS (11)
  1. LIPITOR [Concomitant]
     Active Substance: ATORVASTATIN CALCIUM
     Dosage: 40 MG, QD
     Route: 065
  2. SOTALOL. [Concomitant]
     Active Substance: SOTALOL
     Dosage: 80 MG, BID
     Route: 065
  3. AMARYL [Suspect]
     Active Substance: GLIMEPIRIDE
     Dosage: 2 MG, BID
     Route: 048
  4. METFORMIN [Concomitant]
     Active Substance: METFORMIN HYDROCHLORIDE
     Dosage: 1000 MG, BID
     Route: 065
  5. AMLODIPINE [Concomitant]
     Active Substance: AMLODIPINE BESYLATE
     Dosage: 10 MG, QD
     Route: 065
  6. PREDNICARBATE. [Concomitant]
     Active Substance: PREDNICARBATE
     Dosage: 15 MG, PRN
     Route: 065
  7. AMARYL [Suspect]
     Active Substance: GLIMEPIRIDE
     Indication: TYPE 2 DIABETES MELLITUS
     Dosage: 4 MG, BID
     Route: 048
     Dates: start: 20150615
  8. CLARITIN-D NOS [Concomitant]
     Active Substance: LORATADINE\PSEUDOEPHEDRINE SULFATE
     Dosage: UNK UNK, QD
     Route: 065
  9. ASPIRIN [ACETYLSALICYLIC ACID] [Concomitant]
     Active Substance: ASPIRIN
     Dosage: 81 MG, QD
     Route: 065
  10. FLUOCINOLONE [Concomitant]
     Active Substance: FLUOCINOLONE
     Dosage: 15 MG, PRN
     Route: 065
  11. HYDROCHLOROTHIAZIDE;OLMESARTAN [Concomitant]
     Dosage: UNK UNK, QD
     Route: 065

REACTIONS (3)
  - Confusional state [Recovered/Resolved]
  - Hypoglycaemia [Recovered/Resolved]
  - Benign renal neoplasm [Unknown]

NARRATIVE: CASE EVENT DATE: 20190824
